FAERS Safety Report 8433395-2 (Version None)
Quarter: 2012Q2

REPORT INFORMATION
  Report Type: 
  Country: None (occurrence: None)
  Receive Date: 20120613
  Receipt Date: 20120606
  Transmission Date: 20120825
  Serious: Yes (Life-Threatening, Other)
  Sender: FDA-Public Use
  Company Number: CH-ROXANE LABORATORIES, INC.-2012-RO-01369RO

PATIENT
  Age: 43 Year
  Sex: Female

DRUGS (2)
  1. ALPRAZOLAM [Suspect]
     Dosage: 15 MG
  2. METHADONE HCL [Suspect]
     Dosage: 180 MG

REACTIONS (6)
  - MULTIPLE DRUG OVERDOSE [None]
  - LEUKOENCEPHALOPATHY [None]
  - PNEUMONIA ASPIRATION [None]
  - HEPATIC FAILURE [None]
  - HEPATIC ISCHAEMIA [None]
  - RENAL TUBULAR NECROSIS [None]
